FAERS Safety Report 6853062-6 (Version None)
Quarter: 2010Q3

REPORT INFORMATION
  Report Type: 
  Country: None (occurrence: None)
  Receive Date: 20100717
  Receipt Date: 20071127
  Transmission Date: 20110219
  Serious: No
  Sender: FDA-Public Use
  Company Number: US-PFIZER INC-2007102208

PATIENT
  Sex: Female
  Weight: 78 kg

DRUGS (6)
  1. CHANTIX [Suspect]
     Indication: SMOKING CESSATION THERAPY
     Route: 048
     Dates: start: 20071101
  2. MONTELUKAST SODIUM [Concomitant]
     Indication: RESPIRATORY DISORDER
     Route: 048
  3. LIPITOR [Concomitant]
     Route: 048
  4. LYRICA [Concomitant]
     Route: 048
  5. VICODIN [Concomitant]
     Indication: PAIN
     Route: 048
  6. ALBUTEROL [Concomitant]
     Route: 055

REACTIONS (7)
  - ERUCTATION [None]
  - FEELING ABNORMAL [None]
  - HEADACHE [None]
  - INSOMNIA [None]
  - MALAISE [None]
  - NAUSEA [None]
  - VOMITING [None]
